FAERS Safety Report 15329542 (Version 2)
Quarter: 2018Q3

REPORT INFORMATION
  Report Type: Spontaneous
  Country: GB (occurrence: GB)
  Receive Date: 20180829
  Receipt Date: 20180904
  Transmission Date: 20181010
  Serious: Yes (Other)
  Sender: FDA-Public Use
  Company Number: GB-MYLANLABS-2018M1063140

PATIENT
  Sex: Male
  Weight: 75.85 kg

DRUGS (1)
  1. CLOZARIL [Suspect]
     Active Substance: CLOZAPINE
     Indication: SCHIZOPHRENIA
     Dosage: UNK
     Route: 048
     Dates: start: 20180807, end: 20180818

REACTIONS (2)
  - Myocarditis [Recovered/Resolved]
  - General physical health deterioration [Unknown]

NARRATIVE: CASE EVENT DATE: 201808
